FAERS Safety Report 22385244 (Version 1)
Quarter: 2023Q2

REPORT INFORMATION
  Report Type: Spontaneous
  Country: US (occurrence: None)
  Receive Date: 20230528
  Receipt Date: 20230528
  Transmission Date: 20230722
  Serious: Yes (Hospitalization)
  Sender: FDA-Public Use
  Company Number: None

PATIENT
  Sex: Male
  Weight: 97.52 kg

DRUGS (31)
  1. ABIRATERONE ACETATE [Suspect]
     Active Substance: ABIRATERONE ACETATE
     Indication: Prostate cancer
     Dosage: FREQUENCY : DAILY;?
     Route: 048
     Dates: start: 20230203
  2. ADVIL [Concomitant]
     Active Substance: IBUPROFEN
  3. CETIRIZINE [Concomitant]
     Active Substance: CETIRIZINE HYDROCHLORIDE
  4. ASPIRIN [Concomitant]
     Active Substance: ASPIRIN
  5. BETAMETHASONE [Concomitant]
     Active Substance: BETAMETHASONE
  6. CALCIUM [Concomitant]
     Active Substance: CALCIUM
  7. CLOTRIMAZOLE [Concomitant]
     Active Substance: CLOTRIMAZOLE
  8. COENZYME Q10 [Concomitant]
     Active Substance: DIETARY SUPPLEMENT\UBIDECARENONE
  9. CREATINE [Concomitant]
     Active Substance: CREATINE
  10. CYANOCOBALAMIN [Concomitant]
     Active Substance: CYANOCOBALAMIN
  11. DOXAZOSIN [Concomitant]
     Active Substance: DOXAZOSIN MESYLATE
  12. EZETIMIBE [Concomitant]
     Active Substance: EZETIMIBE
  13. FENOFIBRATE [Concomitant]
     Active Substance: FENOFIBRATE
  14. FENSOLVI [Concomitant]
     Active Substance: LEUPROLIDE ACETATE
  15. FLONASE [Concomitant]
     Active Substance: FLUTICASONE PROPIONATE
  16. FOLIC ACID [Concomitant]
     Active Substance: FOLIC ACID
  17. LEUPROLIDE [Concomitant]
     Active Substance: LEUPROLIDE
  18. LEVOCARNITINE [Concomitant]
     Active Substance: LEVOCARNITINE
  19. METOPROLOL [Concomitant]
  20. MILK OF MAGNESIA [Concomitant]
  21. MIRALAX [Concomitant]
     Active Substance: POLYETHYLENE GLYCOL 3350
  22. VITAMINS [Concomitant]
     Active Substance: VITAMINS
  23. NIMODIPINE [Suspect]
     Active Substance: NIMODIPINE
  24. ONDANSETRON [Concomitant]
     Active Substance: ONDANSETRON
  25. PREDNISONE [Concomitant]
     Active Substance: PREDNISONE
  26. PROCTO-MED HC [Concomitant]
     Active Substance: HYDROCORTISONE
  27. SILDENAFIL [Concomitant]
     Active Substance: SILDENAFIL
  28. SYSTANE BALANCE [Concomitant]
     Active Substance: PROPYLENE GLYCOL
  29. VALSARTAN [Concomitant]
     Active Substance: VALSARTAN
  30. vitamin b complex combinations [Concomitant]
  31. VITAMIN D3 [Concomitant]
     Active Substance: CHOLECALCIFEROL

REACTIONS (1)
  - Malignant neoplasm progression [None]
